FAERS Safety Report 12296876 (Version 1)
Quarter: 2016Q2

REPORT INFORMATION
  Report Type: Spontaneous
  Country: FR (occurrence: FR)
  Receive Date: 20160422
  Receipt Date: 20160422
  Transmission Date: 20160815
  Serious: Yes (Other)
  Sender: FDA-Public Use
  Company Number: FR-GLAXOSMITHKLINE-CHPA2016FR004010

PATIENT
  Age: 61 Year
  Sex: Female
  Weight: 60 kg

DRUGS (4)
  1. LOXEN [Concomitant]
     Active Substance: NICARDIPINE HYDROCHLORIDE
  2. NICOPATCH [Suspect]
     Active Substance: NICOTINE
     Indication: SMOKING CESSATION THERAPY
     Dosage: 21 MG, QD
     Route: 062
     Dates: start: 20160201, end: 20160320
  3. AERIUS [Concomitant]
     Active Substance: DESLORATADINE
  4. TENSTATEN [Concomitant]
     Active Substance: CICLETANINE HYDROCHLORIDE

REACTIONS (6)
  - Bladder irritation [Unknown]
  - Palpitations [Unknown]
  - Application site erythema [Not Recovered/Not Resolved]
  - Ocular hypertension [Unknown]
  - Application site pruritus [Not Recovered/Not Resolved]
  - Haemorrhoids [Unknown]

NARRATIVE: CASE EVENT DATE: 20160204
